FAERS Safety Report 9436478 (Version 2)
Quarter: 2013Q3

REPORT INFORMATION
  Report Type: Report from Study
  Country: CN (occurrence: CN)
  Receive Date: 20130802
  Receipt Date: 20130902
  Transmission Date: 20140515
  Serious: Yes (Hospitalization)
  Sender: FDA-Public Use
  Company Number: CN-ROCHE-1255537

PATIENT
  Age: 57 Year
  Sex: Male

DRUGS (1)
  1. PEGASYS [Suspect]
     Indication: HEPATITIS C
     Route: 058
     Dates: start: 201304, end: 201307

REACTIONS (2)
  - Pleuritic pain [Recovered/Resolved]
  - Lip ulceration [Recovering/Resolving]
